FAERS Safety Report 9197679 (Version 4)
Quarter: 2013Q2

REPORT INFORMATION
  Report Type: Spontaneous
  Country: US (occurrence: US)
  Receive Date: 20130328
  Receipt Date: 20130514
  Transmission Date: 20140414
  Serious: Yes (Other)
  Sender: FDA-Public Use
  Company Number: US-PURDUE-USA-2013-0100161

PATIENT
  Age: 49 Year
  Sex: Male

DRUGS (2)
  1. OXYCONTIN (NDA 22-272) [Suspect]
     Indication: PAIN
     Dosage: 40 MG, Q12H
     Route: 048
  2. OXYCODONE HYDROCHLORIDE (SIMILAR TO NDA 22-272) [Concomitant]
     Indication: BREAKTHROUGH PAIN
     Dosage: 5 MG, UP TO 3 TIMES A DAY
     Route: 048

REACTIONS (9)
  - Cyst [Unknown]
  - Pain [Unknown]
  - Facial bones fracture [Unknown]
  - Drug effect delayed [Unknown]
  - Vomiting [Recovered/Resolved]
  - Nausea [Recovered/Resolved]
  - Drug effect decreased [Not Recovered/Not Resolved]
  - Insomnia [Unknown]
  - Asthenia [Unknown]
